FAERS Safety Report 4914443-0 (Version None)
Quarter: 2006Q1

REPORT INFORMATION
  Report Type: 
  Country: None (occurrence: None)
  Receive Date: 20060113
  Receipt Date: 20051111
  Transmission Date: 20060701
  Serious: No
  Sender: FDA-Public Use
  Company Number: 2005SP003953

PATIENT
  Sex: Female

DRUGS (7)
  1. LUNESTA [Suspect]
     Indication: INSOMNIA
     Dosage: SEE IMAGE
     Route: 048
     Dates: start: 20051101, end: 20051101
  2. ATENOLOL [Concomitant]
  3. SYNTHROID [Concomitant]
  4. ZOLOFT [Concomitant]
  5. METOCLOPRAMIDE [Concomitant]
  6. ASPIRIN [Concomitant]
  7. AMBIEN [Concomitant]

REACTIONS (2)
  - PARADOXICAL DRUG REACTION [None]
  - VERTIGO [None]
